FAERS Safety Report 10378014 (Version 1)
Quarter: 2014Q1

REPORT INFORMATION
  Report Type: Spontaneous
  Country: US (occurrence: None)
  Receive Date: 20140306
  Receipt Date: 20140306
  Transmission Date: 20141002
  Serious: Yes (Hospitalization)
  Sender: FDA-Public Use
  Company Number: 163-21880-13032038

PATIENT
  Age: 91 Year
  Sex: Male

DRUGS (9)
  1. REVLIMID (LENALIDOMIDE) (5 MILLIGRAM, CAPSULES) [Suspect]
     Indication: MYELODYSPLASTIC SYNDROME
     Route: 048
     Dates: start: 20120821
  2. ASPIRIN (ACETYLSALICYLIC ACID) [Concomitant]
  3. ATENOLOL (ATENOLOL) [Concomitant]
  4. FOLIC ACID (FOLIC ACID) [Concomitant]
  5. FOSAMAX (ALENDRONATE SODIUM) [Concomitant]
  6. NORVASC (AMLODIPINE BESILATE) [Concomitant]
  7. PROSCAR (FINASTERIDE) [Concomitant]
  8. TYLENOL EXTRA STRENGTH (PARACETAMOL) [Concomitant]
  9. VASOTEC (ENALAPRIL MALEATE) [Concomitant]

REACTIONS (1)
  - Hip fracture [None]
